FAERS Safety Report 10048885 (Version 1)
Quarter: 2014Q1

REPORT INFORMATION
  Report Type: Spontaneous
  Country: US (occurrence: US)
  Receive Date: 20140331
  Receipt Date: 20140331
  Transmission Date: 20141002
  Serious: No
  Sender: FDA-Public Use
  Company Number: US-PFIZER INC-2014087491

PATIENT
  Age: 61 Year
  Sex: Male

DRUGS (1)
  1. XALKORI [Suspect]
     Indication: LUNG NEOPLASM MALIGNANT
     Dosage: 250 MG, 2X/DAY

REACTIONS (5)
  - Pyrexia [Unknown]
  - Decreased appetite [Unknown]
  - Nausea [Unknown]
  - Eructation [Unknown]
  - Pyrexia [Unknown]
